FAERS Safety Report 24814325 (Version 2)
Quarter: 2025Q1

REPORT INFORMATION
  Report Type: Spontaneous
  Country: US (occurrence: US)
  Receive Date: 20250107
  Receipt Date: 20250131
  Transmission Date: 20250409
  Serious: No
  Sender: PFIZER
  Company Number: US-PFIZER INC-202500002232

PATIENT
  Age: 63 Year
  Sex: Female
  Weight: 68.481 kg

DRUGS (11)
  1. PAXLOVID [Suspect]
     Active Substance: NIRMATRELVIR\RITONAVIR
     Indication: COVID-19 treatment
     Dosage: AS RECOMMENDED, 2X/DAY
     Route: 048
     Dates: start: 20241223, end: 20241227
  2. GEODON [Concomitant]
     Active Substance: ZIPRASIDONE HYDROCHLORIDE\ZIPRASIDONE MESYLATE
  3. LEVOTHYROXINE [Concomitant]
     Active Substance: LEVOTHYROXINE
  4. ROZEREM [Concomitant]
     Active Substance: RAMELTEON
  5. LUNESTA [Concomitant]
     Active Substance: ESZOPICLONE
  6. DIAZEPAM [Concomitant]
     Active Substance: DIAZEPAM
  7. SINGULAIR [Concomitant]
     Active Substance: MONTELUKAST SODIUM
  8. DULERA [Concomitant]
     Active Substance: FORMOTEROL FUMARATE DIHYDRATE\MOMETASONE FUROATE
  9. CELEBREX [Concomitant]
     Active Substance: CELECOXIB
  10. METAXALONE [Concomitant]
     Active Substance: METAXALONE
  11. LIDOCAINE [Concomitant]
     Active Substance: LIDOCAINE

REACTIONS (4)
  - Symptom recurrence [Not Recovered/Not Resolved]
  - Cerebral disorder [Not Recovered/Not Resolved]
  - Nausea [Unknown]
  - Fall [Unknown]

NARRATIVE: CASE EVENT DATE: 20241201
